FAERS Safety Report 5981953-7 (Version None)
Quarter: 2008Q4

REPORT INFORMATION
  Report Type: 
  Country: None (occurrence: None)
  Receive Date: 20081205
  Receipt Date: 20081126
  Transmission Date: 20090506
  Serious: Yes (Other)
  Sender: FDA-Public Use
  Company Number: DK-GENENTECH-272600

PATIENT

DRUGS (6)
  1. RITUXAN [Suspect]
     Indication: MANTLE CELL LYMPHOMA
     Dosage: 375 MG/M2, UNK
     Route: 042
  2. CYCLOPHOSPHAMIDE [Concomitant]
     Indication: MANTLE CELL LYMPHOMA
  3. VINCRISTINE [Concomitant]
     Indication: MANTLE CELL LYMPHOMA
  4. DOXORUBICIN HCL [Concomitant]
     Indication: MANTLE CELL LYMPHOMA
  5. PREDNISONE TAB [Concomitant]
     Indication: MANTLE CELL LYMPHOMA
  6. CYTARABINE [Concomitant]
     Indication: MANTLE CELL LYMPHOMA

REACTIONS (3)
  - CYTOMEGALOVIRUS INFECTION [None]
  - PNEUMOCYSTIS JIROVECI PNEUMONIA [None]
  - PNEUMONIA RESPIRATORY SYNCYTIAL VIRAL [None]
